FAERS Safety Report 8962930 (Version 1)
Quarter: 2012Q4

REPORT INFORMATION
  Report Type: 
  Country: BR (occurrence: BR)
  Receive Date: 20121213
  Receipt Date: 20121213
  Transmission Date: 20130627
  Serious: Yes (Hospitalization)
  Sender: FDA-Public Use
  Company Number: BR-PFIZER INC-2012313173

PATIENT
  Age: 58 Year
  Sex: Female

DRUGS (1)
  1. FRONTAL [Suspect]
     Indication: SLEEP DISORDER
     Dosage: 2 tablets of 2 mg daily
     Route: 048
     Dates: start: 20071210

REACTIONS (2)
  - Skin cancer [Unknown]
  - Off label use [Unknown]
